FAERS Safety Report 8806294 (Version 1)
Quarter: 2012Q4

REPORT INFORMATION
  Report Type: 
  Country: US (occurrence: US)
  Receive Date: 20120925
  Receipt Date: 20120925
  Transmission Date: 20130627
  Serious: Yes (Other)
  Sender: FDA-Public Use
  Company Number: US-BAYER-2012-098724

PATIENT

DRUGS (1)
  1. YAZ [Suspect]
     Dosage: UNK
     Route: 064

REACTIONS (1)
  - Prenatal screening test abnormal [None]
